FAERS Safety Report 18529241 (Version 1)
Quarter: 2020Q4

REPORT INFORMATION
  Report Type: Spontaneous
  Country: NO (occurrence: NO)
  Receive Date: 20201120
  Receipt Date: 20201120
  Transmission Date: 20210114
  Serious: Yes (Hospitalization)
  Sender: FDA-Public Use
  Company Number: NVSC2020NO303689

PATIENT
  Age: 42 Year
  Sex: Female

DRUGS (4)
  1. COSENTYX [Suspect]
     Active Substance: SECUKINUMAB
     Indication: SAPHO SYNDROME
     Dosage: 300 MG, QW (300 MG SC WEEKLY 5 TIMES, THEN MONTHLY (PLANNED DOSING, DISCONTINUED AFTER 2 INJECTIONS
     Route: 058
     Dates: start: 20190926, end: 20191014
  2. IBUX [Concomitant]
     Active Substance: IBUPROFEN
     Indication: SAPHO SYNDROME
     Dosage: 600 MG, PRN
     Route: 048
     Dates: start: 2017
  3. PARACETAMOL [Concomitant]
     Active Substance: ACETAMINOPHEN
     Indication: SAPHO SYNDROME
     Dosage: 1 G, PRN  (1 G UP TO X 4)
     Route: 048
     Dates: start: 2017
  4. TRAMADOL HEXAL [Concomitant]
     Active Substance: TRAMADOL
     Indication: SAPHO SYNDROME
     Dosage: 50 MG, PRN
     Route: 048
     Dates: start: 2019

REACTIONS (1)
  - Lung infiltration [Recovered/Resolved]

NARRATIVE: CASE EVENT DATE: 20191003
